FAERS Safety Report 25872476 (Version 2)
Quarter: 2025Q4

REPORT INFORMATION
  Report Type: Spontaneous
  Country: EU (occurrence: EU)
  Receive Date: 20251002
  Receipt Date: 20251119
  Transmission Date: 20260118
  Serious: No
  Sender: ROCHE
  Company Number: EU-002147023-NVSC2025CZ147601

PATIENT
  Weight: 80 kg

DRUGS (2)
  1. XOLAIR [Suspect]
     Active Substance: OMALIZUMAB
     Indication: Asthma
     Dosage: 450 MG, Q4W
     Route: 065
     Dates: start: 2018, end: 2023
  2. THEOPHYLLINE [Concomitant]
     Active Substance: THEOPHYLLINE
     Indication: Obstructive airways disorder
     Dosage: UNK
     Route: 065

REACTIONS (1)
  - Asthma [Unknown]

NARRATIVE: CASE EVENT DATE: 20230101
